FAERS Safety Report 11401321 (Version 1)
Quarter: 2015Q3

REPORT INFORMATION
  Report Type: Spontaneous
  Country: US (occurrence: US)
  Receive Date: 20150820
  Receipt Date: 20150820
  Transmission Date: 20151125
  Serious: No
  Sender: FDA-Public Use
  Company Number: US-009507513-1508USA007917

PATIENT
  Age: 76 Year
  Sex: Male

DRUGS (1)
  1. CLOTRIMAZOLE/BETAMETHASONE DIPROPIONATE (WARRICK) [Suspect]
     Active Substance: BETAMETHASONE DIPROPIONATE\CLOTRIMAZOLE
     Indication: TINEA INFECTION
     Dosage: APPLYING IT ONCE A DAY

REACTIONS (9)
  - Pruritus genital [Unknown]
  - Road traffic accident [Unknown]
  - Emphysema [Unknown]
  - Prostatic disorder [Unknown]
  - Drug ineffective [Unknown]
  - Diverticulitis [Unknown]
  - Dyspepsia [Unknown]
  - Patella fracture [Unknown]
  - Hyperhidrosis [Unknown]
